FAERS Safety Report 18183567 (Version 1)
Quarter: 2020Q3

REPORT INFORMATION
  Report Type: Spontaneous
  Country: FR (occurrence: FR)
  Receive Date: 20200822
  Receipt Date: 20200822
  Transmission Date: 20201103
  Serious: Yes (Life-Threatening, Hospitalization)
  Sender: FDA-Public Use
  Company Number: NVSC2020FR231083

PATIENT
  Age: 42 Year
  Sex: Female
  Weight: 86 kg

DRUGS (3)
  1. QUETIAPINE. [Suspect]
     Active Substance: QUETIAPINE
     Indication: DEPRESSION
     Dosage: 150 MG
     Route: 048
  2. LEELOO [Suspect]
     Active Substance: ETHINYL ESTRADIOL\LEVONORGESTREL
     Indication: CONTRACEPTION
     Dosage: UNK
     Route: 048
  3. TERCIAN [Suspect]
     Active Substance: CYAMEMAZINE
     Indication: DEPRESSION
     Dosage: 0.5 DF, QD
     Route: 048

REACTIONS (2)
  - Pulmonary embolism [Not Recovered/Not Resolved]
  - Cerebrovascular accident [Not Recovered/Not Resolved]

NARRATIVE: CASE EVENT DATE: 20200706
